FAERS Safety Report 13072109 (Version 1)
Quarter: 2016Q4

REPORT INFORMATION
  Report Type: Spontaneous
  Country: LB (occurrence: LB)
  Receive Date: 20161229
  Receipt Date: 20161229
  Transmission Date: 20170207
  Serious: Yes (Death, Hospitalization)
  Sender: FDA-Public Use
  Company Number: LB-NOVOPROD-518450

PATIENT
  Age: 9 Year
  Sex: Female
  Weight: 40 kg

DRUGS (2)
  1. NOVOSEVEN [Suspect]
     Active Substance: COAGULATION FACTOR VIIA RECOMBINANT HUMAN
     Dosage: INCREASED THE DOSE TO 90MCG/KG
     Route: 065
  2. NOVOSEVEN [Suspect]
     Active Substance: COAGULATION FACTOR VIIA RECOMBINANT HUMAN
     Indication: HAEMORRHAGE
     Dosage: 75MCG/KG EQUIVALENT TO 3 MG
     Route: 065

REACTIONS (3)
  - Haemorrhage [Unknown]
  - Death [Fatal]
  - Off label use [Unknown]
